FAERS Safety Report 8816479 (Version 1)
Quarter: 2012Q4

REPORT INFORMATION
  Report Type: Spontaneous
  Country: US (occurrence: None)
  Receive Date: 20120927
  Receipt Date: 20120927
  Transmission Date: 20130627
  Serious: Yes (Death, Hospitalization, Other)
  Sender: FDA-Public Use
  Company Number: 2012MA011241

PATIENT
  Sex: Male
  Weight: 81.65 kg

DRUGS (29)
  1. METOCLOPRAMIDE TABLETS USP, 10 MG (PUREPAC) [Suspect]
     Indication: GASTROPARESIS
     Dates: start: 199301, end: 200012
  2. ACTOS [Concomitant]
  3. ATACAND [Concomitant]
  4. ATENOLOL [Concomitant]
  5. ATIVAN [Concomitant]
  6. CELLULASE [Concomitant]
  7. CELLUZYME [Concomitant]
  8. CLONAZEPAM [Concomitant]
  9. COGENTIN [Concomitant]
  10. COLACE [Concomitant]
  11. DERMA-SMOOTH [Concomitant]
  12. DOCUSATE [Concomitant]
  13. EFFEXOR [Concomitant]
  14. ERYTHROMYCIN [Concomitant]
  15. HUMALOG [Concomitant]
  16. HYDROXYZINE [Concomitant]
  17. LACTULOSE [Concomitant]
  18. MAGIC MOUTHWASH [Concomitant]
  19. MAY-VITA ELIXER [Concomitant]
  20. MORPHINE [Concomitant]
  21. MOTRIN [Concomitant]
  22. MS CONTIN [Concomitant]
  23. NEURONTIN [Concomitant]
  24. PLAVIX [Concomitant]
  25. PROPULSID [Concomitant]
  26. REMERON [Concomitant]
  27. REZULIN [Concomitant]
  28. ULTAM [Concomitant]
  29. ZOLOFT [Concomitant]

REACTIONS (19)
  - Tardive dyskinesia [None]
  - Extrapyramidal disorder [None]
  - Economic problem [None]
  - Emotional distress [None]
  - Family stress [None]
  - Metastatic neoplasm [None]
  - Early satiety [None]
  - Impaired gastric emptying [None]
  - Gastrooesophageal reflux disease [None]
  - Bezoar [None]
  - Impaired gastric emptying [None]
  - Cerebrovascular accident [None]
  - Aphasia [None]
  - Balance disorder [None]
  - Parkinsonism [None]
  - Dystonia [None]
  - Gastritis [None]
  - Deafness [None]
  - Cerebral infarction [None]
